FAERS Safety Report 10866649 (Version 1)
Quarter: 2015Q1

REPORT INFORMATION
  Report Type: Spontaneous
  Country: US (occurrence: None)
  Receive Date: 20150220
  Receipt Date: 20150220
  Transmission Date: 20150721
  Serious: No
  Sender: FDA-Public Use
  Company Number: None

PATIENT
  Age: 64 Year
  Sex: Female
  Weight: 75.3 kg

DRUGS (3)
  1. ZETIA [Concomitant]
     Active Substance: EZETIMIBE
  2. PRINIVIL [Concomitant]
     Active Substance: LISINOPRIL
  3. METFORMIN HYDROCHLORIDE. [Suspect]
     Active Substance: METFORMIN HYDROCHLORIDE
     Dates: end: 20150215

REACTIONS (7)
  - Dizziness [None]
  - Syncope [None]
  - Contusion [None]
  - Pain [None]
  - Nausea [None]
  - Head injury [None]
  - Fall [None]

NARRATIVE: CASE EVENT DATE: 20150216
